FAERS Safety Report 8568047-1 (Version None)
Quarter: 2012Q3

REPORT INFORMATION
  Report Type: 
  Country: None (occurrence: None)
  Receive Date: 20120803
  Receipt Date: 20120730
  Transmission Date: 20120928
  Serious: Yes (Hospitalization, Other)
  Sender: FDA-Public Use
  Company Number: PHHY2011BE100221

PATIENT
  Sex: Male

DRUGS (3)
  1. GILENYA [Suspect]
     Indication: RELAPSING-REMITTING MULTIPLE SCLEROSIS
     Dosage: 0.5 MG, QD
     Route: 048
     Dates: start: 20110809
  2. PHENYTOIN SODIUM [Suspect]
     Indication: GRAND MAL CONVULSION
     Dosage: 100 MG, QID
  3. PHENYTOIN SODIUM [Suspect]
     Dosage: 300MG TO 400 MG, UNK

REACTIONS (6)
  - MUSCLE RIGIDITY [None]
  - LOSS OF CONSCIOUSNESS [None]
  - GRAND MAL CONVULSION [None]
  - CONFUSIONAL STATE [None]
  - SOMNOLENCE [None]
  - CONVULSION [None]
